FAERS Safety Report 21607273 (Version 3)
Quarter: 2023Q1

REPORT INFORMATION
  Report Type: Report from Study
  Country: CA (occurrence: CA)
  Receive Date: 20221117
  Receipt Date: 20230102
  Transmission Date: 20230417
  Serious: Yes (Other)
  Sender: FDA-Public Use
  Company Number: CA-JNJFOC-20221048482

PATIENT
  Age: 55 Year
  Sex: Female
  Weight: 55 kg

DRUGS (4)
  1. REMICADE [Suspect]
     Active Substance: INFLIXIMAB
     Indication: Crohn^s disease
     Dosage: DOSE ADMINISTERED ON 08-SEP-2022 OF DOSE 5 MG/KG. EXPIRATION DATE: 28-FEB-2025?THERAPY START DATE AL
     Route: 041
     Dates: start: 20100115
  2. REMICADE [Suspect]
     Active Substance: INFLIXIMAB
     Route: 042
     Dates: start: 2022
  3. IMURAN [Concomitant]
     Active Substance: AZATHIOPRINE
     Indication: Product used for unknown indication
     Dosage: DOSE INCREASED
     Route: 065
  4. IMURAN [Concomitant]
     Active Substance: AZATHIOPRINE
     Dosage: 2.5 TABLETS DAILY
     Route: 065
     Dates: start: 20221208

REACTIONS (5)
  - Gastrointestinal obstruction [Recovered/Resolved]
  - Drug level below therapeutic [Unknown]
  - COVID-19 [Recovered/Resolved]
  - Therapeutic product effect decreased [Unknown]
  - Off label use [Unknown]

NARRATIVE: CASE EVENT DATE: 20220101
